FAERS Safety Report 21103009 (Version 4)
Quarter: 2022Q3

REPORT INFORMATION
  Report Type: Report from Study
  Country: US (occurrence: US)
  Receive Date: 20220720
  Receipt Date: 20220919
  Transmission Date: 20221027
  Serious: Yes (Life-Threatening, Hospitalization)
  Sender: FDA-Public Use
  Company Number: US-INSMED, INC.-2022-01794-US

PATIENT
  Sex: Male
  Weight: 63 kg

DRUGS (1)
  1. ARIKAYCE [Suspect]
     Active Substance: AMIKACIN
     Indication: Mycobacterial infection
     Dosage: 590 MILLIGRAM, QD
     Route: 055
     Dates: start: 20220623, end: 20220626

REACTIONS (7)
  - Cardiac arrest [Unknown]
  - Myocardial infarction [Unknown]
  - Back pain [Unknown]
  - Throat irritation [Unknown]
  - Bronchospasm [Not Recovered/Not Resolved]
  - Cough [Unknown]
  - Therapy interrupted [Unknown]

NARRATIVE: CASE EVENT DATE: 20220101
